FAERS Safety Report 5944266-5 (Version None)
Quarter: 2008Q4

REPORT INFORMATION
  Report Type: 
  Country: None (occurrence: None)
  Receive Date: 20081104
  Receipt Date: 20081028
  Transmission Date: 20090506
  Serious: Yes (Hospitalization)
  Sender: FDA-Public Use
  Company Number: ENT 2008-0167

PATIENT
  Sex: Male

DRUGS (2)
  1. ENTACAPONE [Suspect]
     Indication: PARKINSON'S DISEASE
  2. LEVODOPA (LEVODOPA, CARBIDOPA) [Concomitant]

REACTIONS (1)
  - COMA [None]
